FAERS Safety Report 24569697 (Version 2)
Quarter: 2025Q3

REPORT INFORMATION
  Report Type: Report from Study
  Country: US (occurrence: US)
  Receive Date: 20241031
  Receipt Date: 20250802
  Transmission Date: 20251021
  Serious: Yes (Other)
  Sender: ALEXION PHARMACEUTICALS
  Company Number: US-ALXN-202410USA023940US

PATIENT
  Sex: Male

DRUGS (1)
  1. STRENSIQ [Suspect]
     Active Substance: ASFOTASE ALFA
     Route: 065

REACTIONS (6)
  - Bone pain [Unknown]
  - Intervertebral disc protrusion [Unknown]
  - Migraine [Unknown]
  - Fatigue [Unknown]
  - Illness [Unknown]
  - Hypoaesthesia [Unknown]
